FAERS Safety Report 8104689-5 (Version None)
Quarter: 2012Q1

REPORT INFORMATION
  Report Type: 
  Country: None (occurrence: None)
  Receive Date: 20120130
  Receipt Date: 20120117
  Transmission Date: 20120608
  Serious: Yes (Other)
  Sender: FDA-Public Use
  Company Number: 2012MA000864

PATIENT
  Age: 58 Year
  Sex: Female

DRUGS (3)
  1. ROTIGOTINE [Concomitant]
  2. NAPROXEN [Suspect]
     Indication: BACK PAIN
     Dosage: 250 MG' ' PO
     Route: 048
     Dates: start: 20120105, end: 20120106
  3. MADOPAR [Concomitant]

REACTIONS (1)
  - CONVULSION [None]
